FAERS Safety Report 9625626 (Version 1)
Quarter: 2013Q4

REPORT INFORMATION
  Report Type: Spontaneous
  Country: US (occurrence: None)
  Receive Date: 20131015
  Receipt Date: 20131015
  Transmission Date: 20140711
  Serious: Yes (Hospitalization)
  Sender: FDA-Public Use
  Company Number: None

PATIENT
  Age: 63 Year
  Sex: Male

DRUGS (2)
  1. ALENDRONATE [Suspect]
     Indication: COMPRESSION FRACTURE
     Dosage: 1 PILL
     Route: 048
     Dates: start: 20131011, end: 20131012
  2. CALCITONIN [Suspect]
     Dosage: 1 SPRAY INTRANASALLY
     Dates: start: 20131010, end: 20131012

REACTIONS (2)
  - Anaphylactic reaction [None]
  - Hypocalcaemia [None]
